FAERS Safety Report 5028730-1 (Version None)
Quarter: 2006Q2

REPORT INFORMATION
  Report Type: 
  Country: None (occurrence: None)
  Receive Date: 20060619
  Receipt Date: 20060613
  Transmission Date: 20061013
  Serious: Yes (Hospitalization)
  Sender: FDA-Public Use
  Company Number: FR-BRISTOL-MYERS SQUIBB COMPANY-13411111

PATIENT
  Age: 81 Year
  Sex: Female

DRUGS (7)
  1. COAPROVEL TABS 300MG/12.5MG [Suspect]
     Route: 048
     Dates: end: 20060527
  2. ALDACTONE [Interacting]
     Dates: start: 20060127, end: 20060527
  3. CORDARONE [Interacting]
  4. MOPRAL [Interacting]
  5. EUPRESSYL [Concomitant]
     Dates: start: 20060201
  6. LEXOMIL [Concomitant]
  7. DIANTALVIC [Concomitant]

REACTIONS (4)
  - CONFUSIONAL STATE [None]
  - DRUG INTERACTION [None]
  - HYPONATRAEMIA [None]
  - HYPOTENSION [None]
